FAERS Safety Report 17143301 (Version 1)
Quarter: 2019Q4

REPORT INFORMATION
  Report Type: Spontaneous
  Country: FR (occurrence: FR)
  Receive Date: 20191212
  Receipt Date: 20191212
  Transmission Date: 20200122
  Serious: Yes (Other)
  Sender: FDA-Public Use
  Company Number: FR-MYLANLABS-2019M1120357

PATIENT
  Age: 81 Year
  Sex: Female

DRUGS (6)
  1. CYCLOPHOSPHAMIDE. [Suspect]
     Active Substance: CYCLOPHOSPHAMIDE
     Dosage: SECOND CURE OF EC75 WAS ADMINISTRATED
     Dates: start: 20180524
  2. EPIRUBICIN [Suspect]
     Active Substance: EPIRUBICIN
     Indication: BREAST CANCER
     Dosage: CHEMOTHERAPY WITH EC75
     Dates: start: 20180502
  3. CYCLOPHOSPHAMIDE. [Suspect]
     Active Substance: CYCLOPHOSPHAMIDE
     Indication: BREAST CANCER
     Dosage: CHEMOTHERAPY WITH EC75
     Dates: start: 20180502
  4. EPIRUBICIN [Suspect]
     Active Substance: EPIRUBICIN
     Dosage: SECOND CURE OF EC75 WAS ADMINISTRATED
     Dates: start: 20180524
  5. CYCLOPHOSPHAMIDE. [Suspect]
     Active Substance: CYCLOPHOSPHAMIDE
     Dosage: THIRD CURE OF EC75
     Dates: start: 20180613
  6. EPIRUBICIN [Suspect]
     Active Substance: EPIRUBICIN
     Dosage: THIRD CURE OF EC75
     Dates: start: 20180613

REACTIONS (6)
  - Subacute cutaneous lupus erythematosus [Unknown]
  - Skin lesion [Unknown]
  - Erythema [Unknown]
  - Rash [Unknown]
  - Dermatitis [Unknown]
  - Epidermal necrosis [Unknown]

NARRATIVE: CASE EVENT DATE: 20180530
